FAERS Safety Report 11175619 (Version 2)
Quarter: 2015Q2

REPORT INFORMATION
  Report Type: Report from Study
  Country: FR (occurrence: FR)
  Receive Date: 20150609
  Receipt Date: 20150611
  Transmission Date: 20150821
  Serious: Yes (Hospitalization)
  Sender: FDA-Public Use
  Company Number: FR-GLAXOSMITHKLINE-FR2015GSK079347

PATIENT
  Age: 9 Decade
  Sex: Female

DRUGS (8)
  1. OMEGA-3-ACID ETHYL ESTERS. [Suspect]
     Active Substance: OMEGA-3-ACID ETHYL ESTERS
     Indication: ISCHAEMIC HEART DISEASE PROPHYLAXIS
     Dosage: UNK
     Dates: start: 20070405, end: 20130209
  2. COVERSYL [Concomitant]
     Active Substance: PERINDOPRIL
  3. PLAVIX [Concomitant]
     Active Substance: CLOPIDOGREL BISULFATE
  4. CORDARONE [Concomitant]
     Active Substance: AMIODARONE HYDROCHLORIDE
  5. KARDEGIC [Concomitant]
     Active Substance: ASPIRIN LYSINE
  6. CARDENSIEL [Concomitant]
     Active Substance: BISOPROLOL FUMARATE
  7. LASILIX [Concomitant]
     Active Substance: FUROSEMIDE
  8. TAHOR [Concomitant]
     Active Substance: ATORVASTATIN CALCIUM

REACTIONS (1)
  - Depression [Unknown]
